FAERS Safety Report 5883764-X (Version None)
Quarter: 2008Q3

REPORT INFORMATION
  Report Type: 
  Country: None (occurrence: None)
  Receive Date: 20080915
  Receipt Date: 20080904
  Transmission Date: 20090109
  Serious: Yes (Other)
  Sender: FDA-Public Use
  Company Number: US-AMGEN-KDL302655

PATIENT
  Sex: Female
  Weight: 89.4 kg

DRUGS (9)
  1. ENBREL [Suspect]
     Indication: RHEUMATOID ARTHRITIS
     Route: 058
     Dates: start: 20080229
  2. ARAVA [Concomitant]
     Route: 048
  3. METHOTREXATE [Concomitant]
     Route: 058
  4. PREDNISONE TAB [Concomitant]
     Dates: start: 20080229
  5. FOLIC ACID [Concomitant]
  6. LIPITOR [Concomitant]
  7. RELAFEN [Concomitant]
  8. ISONIAZID [Concomitant]
  9. PYRIDOXINE HYDROCHLORIDE [Concomitant]

REACTIONS (13)
  - ARTHRALGIA [None]
  - ARTHROPATHY [None]
  - DECREASED APPETITE [None]
  - FATIGUE [None]
  - FOOT FRACTURE [None]
  - INTERMITTENT CLAUDICATION [None]
  - JOINT STIFFNESS [None]
  - MUSCLE SPASMS [None]
  - OEDEMA PERIPHERAL [None]
  - PAIN IN EXTREMITY [None]
  - RENAL FAILURE ACUTE [None]
  - VISUAL ACUITY REDUCED [None]
  - WEIGHT INCREASED [None]
